FAERS Safety Report 22755952 (Version 2)
Quarter: 2023Q4

REPORT INFORMATION
  Report Type: Other
  Country: FR (occurrence: None)
  Receive Date: 20230727
  Receipt Date: 20231010
  Transmission Date: 20240109
  Serious: Yes (Death)
  Sender: FDA-Public Use
  Company Number: FR-AMGEN-FRASP2023121402

PATIENT
  Age: 50 Year
  Sex: Male

DRUGS (10)
  1. BEVACIZUMAB [Suspect]
     Active Substance: BEVACIZUMAB
     Indication: Malignant peritoneal neoplasm
     Route: 065
     Dates: start: 202202
  2. ATEZOLIZUMAB [Suspect]
     Active Substance: ATEZOLIZUMAB
     Indication: Malignant peritoneal neoplasm
     Route: 065
     Dates: start: 202202
  3. DOXORUBICIN [Concomitant]
     Active Substance: DOXORUBICIN
  4. CABOZANTINIB [Concomitant]
     Active Substance: CABOZANTINIB
     Dates: start: 202104
  5. OXALIPLATIN [Concomitant]
     Active Substance: OXALIPLATIN
  6. FLUOROURACIL [Concomitant]
     Active Substance: FLUOROURACIL
  7. SORAFENIB [Concomitant]
     Active Substance: SORAFENIB
     Dates: start: 202010
  8. MITOMYCIN [Concomitant]
     Active Substance: MITOMYCIN
     Dates: start: 202010
  9. LEUCOVORIN [Concomitant]
     Active Substance: LEUCOVORIN\LEUCOVORIN CALCIUM
     Dates: start: 202010
  10. XELODA [Concomitant]
     Active Substance: CAPECITABINE
     Route: 048
     Dates: start: 202010

REACTIONS (3)
  - Disease progression [Fatal]
  - Myositis [Unknown]
  - Off label use [Unknown]
